FAERS Safety Report 4716597-8 (Version None)
Quarter: 2005Q3

REPORT INFORMATION
  Report Type: 
  Country: None (occurrence: None)
  Receive Date: 20050713
  Receipt Date: 20050630
  Transmission Date: 20060218
  Serious: Yes (Life-Threatening, Hospitalization)
  Sender: FDA-Public Use
  Company Number: 2005095910

PATIENT
  Age: 82 Year
  Sex: Female

DRUGS (2)
  1. ARTHROTEC [Suspect]
     Indication: ARTHRITIS
     Dosage: ORAL
     Route: 048
     Dates: end: 20050616
  2. WARFARIN SODIUM [Concomitant]

REACTIONS (2)
  - HYPERKALAEMIA [None]
  - RENAL FAILURE [None]
